FAERS Safety Report 6385593-X (Version None)
Quarter: 2009Q4

REPORT INFORMATION
  Report Type: 
  Country: None (occurrence: None)
  Receive Date: 20091002
  Receipt Date: 20090922
  Transmission Date: 20100525
  Serious: Yes (Death)
  Sender: FDA-Public Use
  Company Number: KR-PFIZER INC-2009272056

PATIENT

DRUGS (11)
  1. VORICONAZOLE [Suspect]
     Indication: ASPERGILLOSIS
     Dosage: 294 MG, 2X/DAY
     Route: 042
     Dates: start: 20071030, end: 20071030
  2. VORICONAZOLE [Suspect]
     Dosage: 200 MG, 2X/DAY
     Route: 042
     Dates: start: 20071031, end: 20071031
  3. MAXIPIME [Concomitant]
     Indication: FEBRILE NEUTROPENIA
     Dosage: 1 G, 2X/DAY
     Route: 042
     Dates: start: 20070926, end: 20071031
  4. MAXIPIME [Concomitant]
     Indication: ANTIBIOTIC THERAPY
  5. VANCOMYCIN [Concomitant]
     Indication: FEBRILE NEUTROPENIA
     Dosage: 1 G, 2X/DAY
     Route: 042
     Dates: start: 20070923, end: 20071031
  6. VANCOMYCIN [Concomitant]
     Indication: ANTIBIOTIC THERAPY
  7. NEUTROGIN [Concomitant]
     Indication: NEUTROPENIA
     Dosage: 250 UG, 1X/DAY
     Route: 041
     Dates: start: 20070927, end: 20071031
  8. ACETYLCYSTEINE [Concomitant]
     Indication: PRODUCTIVE COUGH
     Dosage: 300 MG, 2X/DAY
     Route: 042
     Dates: start: 20071008, end: 20071021
  9. MIDAZOLAM [Concomitant]
     Indication: SEDATION
     Dosage: 630 MG, CONTINUOUSLY
     Route: 041
     Dates: start: 20071021, end: 20071031
  10. LASIX [Concomitant]
     Indication: URINE OUTPUT
     Dosage: 20 MG, 1X/DAY
     Route: 042
     Dates: start: 20071021, end: 20071031
  11. HEPARIN [Concomitant]
     Indication: BRONCHOSCOPY
     Dosage: 20000 IU, 1X/DAY
     Dates: start: 20071024, end: 20071024

REACTIONS (1)
  - DEATH [None]
